FAERS Safety Report 7785791-4 (Version None)
Quarter: 2011Q3

REPORT INFORMATION
  Report Type: 
  Country: None (occurrence: None)
  Receive Date: 20110929
  Receipt Date: 20110920
  Transmission Date: 20111222
  Serious: Yes (Other)
  Sender: FDA-Public Use
  Company Number: JP-BRISTOL-MYERS SQUIBB COMPANY-16108029

PATIENT
  Age: 6 Decade
  Sex: Male

DRUGS (2)
  1. METFORMIN HCL [Suspect]
     Indication: DIABETES MELLITUS
     Dates: start: 20110901
  2. INSULIN [Concomitant]
     Indication: DIABETES MELLITUS

REACTIONS (2)
  - MYOCARDIAL INFARCTION [None]
  - LACTIC ACIDOSIS [None]
